FAERS Safety Report 26187588 (Version 1)
Quarter: 2025Q4

REPORT INFORMATION
  Report Type: Report from Study
  Country: CO (occurrence: CO)
  Receive Date: 20251222
  Receipt Date: 20251222
  Transmission Date: 20260118
  Serious: Yes (Hospitalization)
  Sender: ALEXION PHARMACEUTICALS
  Company Number: CO-AstraZeneca-CH-01015922A

PATIENT
  Age: 47 Year
  Sex: Male
  Weight: 73 kg

DRUGS (1)
  1. DURVALUMAB [Suspect]
     Active Substance: DURVALUMAB
     Indication: Lung neoplasm malignant
     Dosage: 1500 MILLIGRAM, Q3W
     Dates: start: 20251105

REACTIONS (5)
  - Swelling face [Unknown]
  - Eye swelling [Unknown]
  - Speech disorder [Unknown]
  - Paraesthesia oral [Unknown]
  - Chest pain [Unknown]

NARRATIVE: CASE EVENT DATE: 20251213
